FAERS Safety Report 16519569 (Version 2)
Quarter: 2019Q3

REPORT INFORMATION
  Report Type: Spontaneous
  Country: FR (occurrence: FR)
  Receive Date: 20190702
  Receipt Date: 20190722
  Transmission Date: 20191004
  Serious: Yes (Hospitalization, Other)
  Sender: FDA-Public Use
  Company Number: PHHY2019FR146199

PATIENT
  Age: 53 Year
  Sex: Male

DRUGS (1)
  1. IBUPROFEN. [Suspect]
     Active Substance: IBUPROFEN
     Indication: PRODUCT USED FOR UNKNOWN INDICATION
     Dosage: UNK
     Route: 065

REACTIONS (21)
  - Skin disorder [Unknown]
  - Ventricular hypokinesia [Recovering/Resolving]
  - Thrombotic microangiopathy [Recovered/Resolved]
  - Anaemia [Recovering/Resolving]
  - Thrombocytopenia [Recovered/Resolved]
  - Depressed level of consciousness [Recovered/Resolved]
  - Acute kidney injury [Recovered/Resolved]
  - Haemolytic uraemic syndrome [Recovering/Resolving]
  - Purpura [Recovered/Resolved]
  - Metabolic acidosis [Recovered/Resolved]
  - Confusional state [Recovered/Resolved]
  - Anuria [Recovered/Resolved]
  - Skin lesion [Recovering/Resolving]
  - General physical health deterioration [Recovered/Resolved]
  - Pyrexia [Recovered/Resolved]
  - Myocarditis [Recovering/Resolving]
  - Pneumonia [Recovering/Resolving]
  - Respiratory distress [Recovered/Resolved]
  - Inflammation [Recovered/Resolved]
  - Hyperlactacidaemia [Recovered/Resolved]
  - Streptococcus test positive [Recovering/Resolving]
